FAERS Safety Report 6285623-X (Version None)
Quarter: 2009Q3

REPORT INFORMATION
  Report Type: 
  Country: None (occurrence: None)
  Receive Date: 20090727
  Receipt Date: 20090722
  Transmission Date: 20100115
  Serious: Yes (Hospitalization)
  Sender: FDA-Public Use
  Company Number: FR-BAXTER-2009BH011588

PATIENT
  Age: 21 Year
  Sex: Male

DRUGS (21)
  1. HOLOXAN BAXTER [Suspect]
     Indication: HODGKIN'S DISEASE STAGE IV
     Route: 042
     Dates: start: 20090105, end: 20090109
  2. UROMITEXAN BAXTER [Suspect]
     Indication: HODGKIN'S DISEASE STAGE IV
     Route: 042
     Dates: start: 20090105, end: 20090109
  3. NAVELBINE [Suspect]
     Indication: HODGKIN'S DISEASE STAGE IV
     Route: 042
     Dates: start: 20090105, end: 20090105
  4. NAVELBINE [Suspect]
     Route: 042
     Dates: start: 20090109, end: 20090109
  5. BLEOMYCIN GENERIC [Suspect]
     Indication: HODGKIN'S DISEASE STAGE IV
     Route: 042
     Dates: start: 20080701, end: 20081201
  6. DOXORUBICIN HYDROCHLORIDE [Suspect]
     Indication: HODGKIN'S DISEASE STAGE IV
     Route: 042
     Dates: start: 20080701, end: 20081201
  7. VINBLASTINE [Suspect]
     Indication: HODGKIN'S DISEASE STAGE IV
     Route: 042
     Dates: start: 20080701, end: 20081201
  8. DACARBAZINE [Suspect]
     Indication: HODGKIN'S DISEASE STAGE IV
     Route: 042
     Dates: start: 20080701, end: 20081201
  9. METHYL-GAG [Suspect]
     Indication: HODGKIN'S DISEASE STAGE IV
     Route: 042
     Dates: start: 20090105, end: 20090105
  10. METHYL-GAG [Suspect]
     Route: 042
     Dates: start: 20090109, end: 20090109
  11. ETOPOSIDE [Suspect]
     Indication: HODGKIN'S DISEASE STAGE IV
     Route: 042
     Dates: start: 20090105, end: 20090107
  12. ONDANSETRON HCL [Concomitant]
     Indication: PREMEDICATION
     Route: 065
     Dates: start: 20090105, end: 20090109
  13. PREDNISOLONE [Concomitant]
     Indication: PREMEDICATION
     Route: 065
     Dates: start: 20090105, end: 20090109
  14. LASIX [Concomitant]
     Indication: PREMEDICATION
     Route: 065
     Dates: start: 20090105, end: 20090109
  15. VALACYCLOVIR HCL [Concomitant]
     Indication: DRUG USE FOR UNKNOWN INDICATION
     Route: 065
  16. PANTOPRAZOLE SODIUM [Concomitant]
     Indication: DRUG USE FOR UNKNOWN INDICATION
     Route: 065
  17. ONDANSETRON HCL [Concomitant]
     Indication: DRUG USE FOR UNKNOWN INDICATION
     Route: 065
  18. PRIMPERAN [Concomitant]
     Indication: DRUG USE FOR UNKNOWN INDICATION
     Route: 065
  19. POLYETHYLENE GLYCOL [Concomitant]
     Indication: DRUG USE FOR UNKNOWN INDICATION
     Route: 065
  20. CONTRAMAL [Concomitant]
     Indication: DRUG USE FOR UNKNOWN INDICATION
     Route: 065
  21. LENOGRASTIM [Concomitant]
     Indication: DRUG USE FOR UNKNOWN INDICATION
     Route: 065

REACTIONS (3)
  - FEBRILE BONE MARROW APLASIA [None]
  - LUNG DISORDER [None]
  - MUCOSAL INFLAMMATION [None]
